FAERS Safety Report 26130429 (Version 2)
Quarter: 2025Q4

REPORT INFORMATION
  Report Type: Spontaneous
  Country: US (occurrence: None)
  Receive Date: 20251208
  Receipt Date: 20251216
  Transmission Date: 20260117
  Serious: Yes (Other)
  Sender: UCB
  Company Number: US-UCBSA-2025063126

PATIENT
  Age: 60 Year
  Weight: 98.88 kg

DRUGS (1)
  1. BIMZELX [Suspect]
     Active Substance: BIMEKIZUMAB-BKZX
     Indication: Psoriatic arthropathy
     Dosage: 320 MILLIGRAM, EV 4 WEEKS

REACTIONS (6)
  - Tendon transfer [Unknown]
  - Diarrhoea [Unknown]
  - Acne [Unknown]
  - Gastrointestinal disorder [Unknown]
  - Off label use [Unknown]
  - Intentional dose omission [Unknown]
